FAERS Safety Report 4733086-5 (Version None)
Quarter: 2005Q3

REPORT INFORMATION
  Report Type: 
  Country: None (occurrence: None)
  Receive Date: 20050801
  Receipt Date: 20050801
  Transmission Date: 20060218
  Serious: Yes (Hospitalization)
  Sender: FDA-Public Use
  Company Number: None

PATIENT
  Age: 57 Year
  Sex: Male
  Weight: 116 kg

DRUGS (3)
  1. CITALOPRAM [Suspect]
     Indication: DEPRESSION
     Dosage: 40 MG PO HS
     Route: 048
     Dates: start: 20050303, end: 20050521
  2. CITALOPRAM [Suspect]
     Indication: POST-TRAUMATIC STRESS DISORDER
     Dosage: 40 MG PO HS
     Route: 048
     Dates: start: 20050303, end: 20050521
  3. MIRTAZAPINE [Suspect]
     Indication: SOMNOLENCE
     Dosage: 30 MG PO HS
     Route: 048
     Dates: start: 20050324, end: 20050521

REACTIONS (17)
  - ABDOMINAL PAIN [None]
  - AMMONIA INCREASED [None]
  - ASTHENIA [None]
  - CHEST PAIN [None]
  - CLONUS [None]
  - CONFUSIONAL STATE [None]
  - FREQUENT BOWEL MOVEMENTS [None]
  - HEADACHE [None]
  - HEPATIC ENCEPHALOPATHY [None]
  - HYPERREFLEXIA [None]
  - MENTAL STATUS CHANGES [None]
  - MUSCLE TWITCHING [None]
  - NAUSEA [None]
  - PAIN [None]
  - PYREXIA [None]
  - SEROTONIN SYNDROME [None]
  - VOMITING [None]
